FAERS Safety Report 23795712 (Version 1)
Quarter: 2024Q2

REPORT INFORMATION
  Report Type: Spontaneous
  Country: US (occurrence: US)
  Receive Date: 20240429
  Receipt Date: 20240429
  Transmission Date: 20240716
  Serious: Yes (Other)
  Sender: FDA-Public Use
  Company Number: US-BAUSCHBL-2024BNL025991

PATIENT
  Sex: Female

DRUGS (1)
  1. GENTAMICIN SULFATE [Suspect]
     Active Substance: GENTAMICIN SULFATE
     Indication: Product used for unknown indication
     Route: 065

REACTIONS (2)
  - Eye haemorrhage [Unknown]
  - Eye irritation [Unknown]
